FAERS Safety Report 16339856 (Version 1)
Quarter: 2019Q2

REPORT INFORMATION
  Report Type: Spontaneous
  Country: LT (occurrence: LT)
  Receive Date: 20190521
  Receipt Date: 20190521
  Transmission Date: 20190711
  Serious: Yes (Hospitalization, Other)
  Sender: FDA-Public Use
  Company Number: LT-ALLERGAN-1920744US

PATIENT
  Sex: Female
  Weight: .59 kg

DRUGS (8)
  1. GENTAMICIN UNK [Suspect]
     Active Substance: GENTAMICIN
     Indication: ANTIBIOTIC THERAPY
     Dosage: UNK
     Route: 065
  2. CEFUROXIME. [Concomitant]
     Active Substance: CEFUROXIME
     Indication: ANTIBIOTIC THERAPY
     Dosage: UNK
  3. CEFOTAXIME [Concomitant]
     Active Substance: CEFOTAXIME SODIUM
     Indication: ANTIBIOTIC THERAPY
     Dosage: UNK
  4. CAPTOPRIL. [Suspect]
     Active Substance: CAPTOPRIL
     Indication: HYPERTENSION
     Dosage: 4 DF
     Route: 065
  5. PENICILLIN [Concomitant]
     Active Substance: PENICILLIN
     Indication: ANTIBIOTIC THERAPY
     Dosage: UNK
  6. IBUPROFEN. [Suspect]
     Active Substance: IBUPROFEN
     Indication: PATENT DUCTUS ARTERIOSUS
     Dosage: UNK
     Route: 065
  7. DEXAMETHASONE. [Suspect]
     Active Substance: DEXAMETHASONE
     Indication: PRODUCT USED FOR UNKNOWN INDICATION
     Dosage: UNK
     Route: 065
  8. VITAMIN D [Concomitant]
     Active Substance: VITAMIN D NOS
     Indication: ANTIBIOTIC THERAPY
     Dosage: 400 IU, QD

REACTIONS (7)
  - Off label use [Unknown]
  - Nephropathy toxic [Unknown]
  - Nephrolithiasis [Not Recovered/Not Resolved]
  - Nephrocalcinosis [Unknown]
  - Acute kidney injury [Recovered/Resolved]
  - Sepsis [Unknown]
  - Hyperkalaemia [Unknown]
